FAERS Safety Report 10306974 (Version 1)
Quarter: 2014Q3

REPORT INFORMATION
  Report Type: Spontaneous
  Country: GB (occurrence: GB)
  Receive Date: 20140715
  Receipt Date: 20140715
  Transmission Date: 20150326
  Serious: Yes (Other)
  Sender: FDA-Public Use
  Company Number: PHHY2014GB083994

PATIENT
  Age: 81 Year
  Sex: Female

DRUGS (9)
  1. RAMIPRIL. [Concomitant]
     Active Substance: RAMIPRIL
  2. ALENDRONIC ACID [Suspect]
     Active Substance: ALENDRONIC ACID
     Dosage: 70 MG, QW
     Route: 048
     Dates: start: 20140430, end: 20140528
  3. BISOPROLOL [Concomitant]
     Active Substance: BISOPROLOL
     Dosage: 7.5 MG, UNK
  4. CALCIUM CARBONATE/VITAMIN D3 [Concomitant]
  5. BUDESONIDE W/FORMOTEROL FUMARATE [Concomitant]
     Active Substance: BUDESONIDE\FORMOTEROL FUMARATE
     Dosage: UNK
  6. SIMVASTATINE [Concomitant]
     Active Substance: SIMVASTATIN
  7. MOMETASONE [Concomitant]
     Active Substance: MOMETASONE
  8. ASPIRIN. [Concomitant]
     Active Substance: ASPIRIN
  9. TERBUTALINE [Concomitant]
     Active Substance: TERBUTALINE
     Route: 055

REACTIONS (3)
  - Arthralgia [Recovered/Resolved]
  - Product substitution issue [Unknown]
  - Joint swelling [Recovered/Resolved]

NARRATIVE: CASE EVENT DATE: 20140430
